FAERS Safety Report 5045236-4 (Version None)
Quarter: 2006Q3

REPORT INFORMATION
  Report Type: 
  Country: None (occurrence: None)
  Receive Date: 20060707
  Receipt Date: 20060626
  Transmission Date: 20061208
  Serious: Yes (Other)
  Sender: FDA-Public Use
  Company Number: 2006AC01188

PATIENT
  Age: 58 Year
  Sex: Male

DRUGS (4)
  1. PROPOFOL [Suspect]
     Indication: ANAESTHESIA
  2. CARBIDOPA AND LEVODOPA [Concomitant]
     Indication: PARKINSON'S DISEASE
     Dosage: 100MG/800MG, STARTED 10 YEARS PRIOR TO EVENT, STOPPED NIGHT BEFORE SURGERY.
  3. PRAMIPEXOLE [Concomitant]
     Indication: PARKINSON'S DISEASE
     Dosage: STOPPED NIGHT BEFORE SURGERY
  4. AMANTADINE HCL [Concomitant]
     Indication: PARKINSON'S DISEASE
     Dosage: STOPPED NIGHT BEFORE SURGERY

REACTIONS (5)
  - CONSTIPATION [None]
  - DISEASE PROGRESSION [None]
  - DYSKINESIA [None]
  - PARKINSON'S DISEASE [None]
  - PROCEDURAL COMPLICATION [None]
